FAERS Safety Report 16755918 (Version 3)
Quarter: 2020Q1

REPORT INFORMATION
  Report Type: Report from Study
  Country: US (occurrence: US)
  Receive Date: 20190829
  Receipt Date: 20200302
  Transmission Date: 20200409
  Serious: Yes (Hospitalization)
  Sender: FDA-Public Use
  Company Number: US-ROCHE-2385183

PATIENT
  Age: 42 Year
  Sex: Female
  Weight: 54.48 kg

DRUGS (10)
  1. OCREVUS [Suspect]
     Active Substance: OCRELIZUMAB
     Indication: RELAPSING-REMITTING MULTIPLE SCLEROSIS
     Dosage: ONGOING: YES
     Route: 042
     Dates: start: 201708
  2. OCREVUS [Suspect]
     Active Substance: OCRELIZUMAB
     Indication: NEUROGENIC BLADDER
  3. CLONAZEPAM. [Suspect]
     Active Substance: CLONAZEPAM
     Indication: RELAPSING-REMITTING MULTIPLE SCLEROSIS
     Dosage: 1 TAB BY MOUTH DAILY
     Route: 048
  4. TYLENOL [Concomitant]
     Active Substance: ACETAMINOPHEN
  5. MODAFINIL. [Concomitant]
     Active Substance: MODAFINIL
     Dosage: TAKE 1 ONE TAB MY MOUTH
     Route: 048
  6. CLONAZEPAM. [Suspect]
     Active Substance: CLONAZEPAM
     Indication: NEUROGENIC BLADDER
  7. DALFAMPRIDINE. [Concomitant]
     Active Substance: DALFAMPRIDINE
     Dosage: TAB 1 BY MOUTH EVERY 12HRS
     Route: 065
  8. CITALOPRAM HYDROBROMIDE. [Concomitant]
     Active Substance: CITALOPRAM HYDROBROMIDE
     Dosage: TAKE 1 TABLET EVERY DAY
     Route: 048
  9. BENADRYL [Concomitant]
     Active Substance: DIPHENHYDRAMINE HYDROCHLORIDE
  10. BACLOFEN. [Concomitant]
     Active Substance: BACLOFEN
     Dosage: TAKE 1 TABLET 4 TIMES DAILY
     Route: 065

REACTIONS (6)
  - Off label use [Unknown]
  - Gait disturbance [Recovered/Resolved]
  - Intentional product use issue [Unknown]
  - Hypoaesthesia [Recovered/Resolved]
  - Wound infection bacterial [Recovering/Resolving]
  - Therapeutic response shortened [Not Recovered/Not Resolved]

NARRATIVE: CASE EVENT DATE: 201708
